FAERS Safety Report 5065769-4 (Version None)
Quarter: 2006Q3

REPORT INFORMATION
  Report Type: 
  Country: None (occurrence: None)
  Receive Date: 20060731
  Receipt Date: 20060718
  Transmission Date: 20061208
  Serious: Yes (Death)
  Sender: FDA-Public Use
  Company Number: US-ROCHE-456939

PATIENT

DRUGS (1)
  1. INTERFERON ALFA [Suspect]
     Route: 065

REACTIONS (1)
  - SEPSIS [None]
